FAERS Safety Report 10163534 (Version 3)
Quarter: 2014Q3

REPORT INFORMATION
  Report Type: Spontaneous
  Country: AU (occurrence: AU)
  Receive Date: 20140509
  Receipt Date: 20140801
  Transmission Date: 20150326
  Serious: Yes (Other)
  Sender: FDA-Public Use
  Company Number: AU-ASTRAZENECA-2014SE30048

PATIENT
  Age: 36 Year
  Sex: Female
  Weight: 82 kg

DRUGS (6)
  1. SEROQUEL XR [Suspect]
     Active Substance: QUETIAPINE FUMARATE
     Indication: BIPOLAR DISORDER
     Route: 048
     Dates: start: 1995
  2. SEROQUEL XR [Suspect]
     Active Substance: QUETIAPINE FUMARATE
     Indication: BIPOLAR DISORDER
     Route: 048
  3. SEROQUEL XR [Suspect]
     Active Substance: QUETIAPINE FUMARATE
     Indication: BIPOLAR DISORDER
     Route: 048
  4. SEROQUEL XR [Suspect]
     Active Substance: QUETIAPINE FUMARATE
     Indication: BIPOLAR DISORDER
     Route: 048
  5. SEROQUEL XR [Suspect]
     Active Substance: QUETIAPINE FUMARATE
     Indication: BIPOLAR DISORDER
     Route: 048
  6. BP MEDICATION [Concomitant]
     Dates: start: 2013

REACTIONS (8)
  - Vision blurred [Unknown]
  - Blood pressure increased [Unknown]
  - Epistaxis [Unknown]
  - Dyspnoea [Unknown]
  - Nephrolithiasis [Not Recovered/Not Resolved]
  - Dizziness [Unknown]
  - Renal disorder [Recovered/Resolved]
  - Dysphagia [Unknown]
